FAERS Safety Report 19177936 (Version 1)
Quarter: 2021Q2

REPORT INFORMATION
  Report Type: Spontaneous
  Country: FR (occurrence: FR)
  Receive Date: 20210426
  Receipt Date: 20210426
  Transmission Date: 20210717
  Serious: Yes (Other)
  Sender: FDA-Public Use
  Company Number: FR-SUN PHARMACEUTICAL INDUSTRIES LTD-2021RR-292954

PATIENT
  Sex: Female

DRUGS (1)
  1. NIFEDIPINE RPG LP 20MG COMPRIME A LIBERATION PROLONGEE [Suspect]
     Active Substance: NIFEDIPINE
     Indication: GESTATIONAL HYPERTENSION
     Dosage: 1 DOSAGE FORM, DAILY
     Route: 048
     Dates: start: 20210115, end: 20210414

REACTIONS (4)
  - Gestational diabetes [Not Recovered/Not Resolved]
  - Drug effective for unapproved indication [Unknown]
  - Off label use [Unknown]
  - Exposure during pregnancy [Unknown]
